FAERS Safety Report 4300310-2 (Version None)
Quarter: 2004Q1

REPORT INFORMATION
  Report Type: 
  Country: None (occurrence: None)
  Receive Date: 20040220
  Receipt Date: 20040126
  Transmission Date: 20041129
  Serious: Yes (Life-Threatening)
  Sender: FDA-Public Use
  Company Number: WAES 0401USA01538

PATIENT
  Age: 60 Year
  Sex: Male

DRUGS (12)
  1. NORVASC [Concomitant]
     Route: 048
     Dates: start: 20031230, end: 20040111
  2. URALYT [Concomitant]
     Route: 048
     Dates: start: 20040102, end: 20040113
  3. URINORM [Concomitant]
     Route: 048
     Dates: start: 20040102, end: 20040113
  4. ADONA [Concomitant]
     Route: 048
     Dates: start: 20040102, end: 20040113
  5. DIGOXIN [Suspect]
     Indication: ATRIAL FIBRILLATION
     Route: 048
     Dates: start: 20031231, end: 20040103
  6. DIGOXIN [Suspect]
     Route: 048
     Dates: start: 20040104, end: 20040112
  7. PEPCID [Suspect]
     Indication: GASTRIC ULCER
     Route: 048
     Dates: start: 20031231, end: 20040112
  8. CRAVIT [Concomitant]
     Route: 048
     Dates: start: 20031230, end: 20040104
  9. TRANSAMIN [Concomitant]
     Route: 048
     Dates: start: 20040102, end: 20040113
  10. WARFARIN [Concomitant]
     Route: 048
     Dates: start: 20040111, end: 20040111
  11. WARFARIN [Concomitant]
     Route: 048
     Dates: start: 20040112, end: 20040112
  12. WARFARIN [Concomitant]
     Route: 048
     Dates: start: 20040113, end: 20040113

REACTIONS (9)
  - ASTHENIA [None]
  - ATRIOVENTRICULAR BLOCK COMPLETE [None]
  - DRUG LEVEL INCREASED [None]
  - GASTRIC ULCER [None]
  - HEART RATE INCREASED [None]
  - PNEUMOTHORAX [None]
  - RENAL FAILURE [None]
  - SICK SINUS SYNDROME [None]
  - VOMITING [None]
